FAERS Safety Report 12235214 (Version 1)
Quarter: 2016Q2

REPORT INFORMATION
  Report Type: Spontaneous
  Country: US (occurrence: US)
  Receive Date: 20160404
  Receipt Date: 20160404
  Transmission Date: 20160815
  Serious: Yes (Death, Hospitalization, Other)
  Sender: FDA-Public Use
  Company Number: US-TAKEDA-TPA2013A02051

PATIENT

DRUGS (3)
  1. BYETTA [Concomitant]
     Active Substance: EXENATIDE
     Dosage: UNK
     Dates: start: 201202
  2. GLUCOPHAGE [Concomitant]
     Active Substance: METFORMIN HYDROCHLORIDE
     Dosage: UNK
     Dates: start: 2003
  3. ACTOS [Suspect]
     Active Substance: PIOGLITAZONE HYDROCHLORIDE
     Indication: TYPE 2 DIABETES MELLITUS
     Dosage: 30 MG, UNK
     Route: 048
     Dates: start: 1999, end: 201110

REACTIONS (8)
  - Death [Fatal]
  - Ureteric obstruction [Unknown]
  - Dysstasia [Unknown]
  - Renal failure [Unknown]
  - Erectile dysfunction [Unknown]
  - Bladder cancer [Unknown]
  - Fall [Unknown]
  - Hip fracture [Unknown]

NARRATIVE: CASE EVENT DATE: 201104
